FAERS Safety Report 17010910 (Version 3)
Quarter: 2022Q3

REPORT INFORMATION
  Report Type: Spontaneous
  Country: US (occurrence: None)
  Receive Date: 20191108
  Receipt Date: 20220808
  Transmission Date: 20221026
  Serious: Yes (Other)
  Sender: FDA-Public Use
  Company Number: 2019SF57975

PATIENT
  Age: 16813 Day
  Sex: Female
  Weight: 122.5 kg

DRUGS (46)
  1. PRILOSEC OTC [Suspect]
     Active Substance: OMEPRAZOLE MAGNESIUM
     Indication: Gastrooesophageal reflux disease
     Route: 048
     Dates: start: 2006, end: 2012
  2. PRILOSEC OTC [Suspect]
     Active Substance: OMEPRAZOLE MAGNESIUM
     Indication: Gastrooesophageal reflux disease
     Route: 048
  3. PRILOSEC OTC [Suspect]
     Active Substance: OMEPRAZOLE MAGNESIUM
     Indication: Gastrooesophageal reflux disease
     Route: 048
     Dates: start: 20061018, end: 20061112
  4. PRILOSEC OTC [Suspect]
     Active Substance: OMEPRAZOLE MAGNESIUM
     Indication: Gastrooesophageal reflux disease
     Route: 048
     Dates: start: 20100511
  5. PRILOSEC OTC [Suspect]
     Active Substance: OMEPRAZOLE MAGNESIUM
     Indication: Gastrooesophageal reflux disease
     Route: 048
     Dates: start: 20061018, end: 20091112
  6. PRILOSEC OTC [Suspect]
     Active Substance: OMEPRAZOLE MAGNESIUM
     Indication: Gastrooesophageal reflux disease
     Route: 048
     Dates: start: 20090512, end: 20110816
  7. PRILOSEC OTC [Suspect]
     Active Substance: OMEPRAZOLE MAGNESIUM
     Indication: Gastrooesophageal reflux disease
     Route: 048
     Dates: start: 20110926, end: 20120521
  8. PRILOSEC [Suspect]
     Active Substance: OMEPRAZOLE MAGNESIUM
     Indication: Gastrooesophageal reflux disease
     Dosage: ONCE DAILY
     Route: 048
     Dates: start: 20061018, end: 20090411
  9. PRILOSEC [Suspect]
     Active Substance: OMEPRAZOLE MAGNESIUM
     Indication: Gastrooesophageal reflux disease
     Dosage: ONCE DAILY
     Route: 048
     Dates: start: 20090512, end: 20110816
  10. PRILOSEC [Suspect]
     Active Substance: OMEPRAZOLE MAGNESIUM
     Indication: Gastrooesophageal reflux disease
     Dosage: ONCE DAILY
     Route: 048
     Dates: start: 20110926, end: 20120521
  11. PRILOSEC [Suspect]
     Active Substance: OMEPRAZOLE MAGNESIUM
     Indication: Gastrooesophageal reflux disease
     Route: 048
  12. ATENOLOL [Concomitant]
     Active Substance: ATENOLOL
     Indication: Blood pressure measurement
  13. LASIX [Concomitant]
     Active Substance: FUROSEMIDE
     Indication: Blood pressure measurement
  14. LISINOPRIL [Concomitant]
     Active Substance: LISINOPRIL
     Indication: Blood pressure measurement
  15. POTASSIUM [Concomitant]
     Active Substance: POTASSIUM
  16. METHADONE [Concomitant]
     Active Substance: METHADONE HYDROCHLORIDE
     Indication: Pain
  17. GABAPENTIN [Concomitant]
     Active Substance: GABAPENTIN
     Indication: Neuralgia
  18. ZANAFLEX [Concomitant]
     Active Substance: TIZANIDINE HYDROCHLORIDE
     Indication: Muscle spasms
  19. RANITIDINE [Concomitant]
     Active Substance: RANITIDINE
     Dosage: GENERIC
  20. CARAFATE [Concomitant]
     Active Substance: SUCRALFATE
  21. VITAMIN D3 [Concomitant]
     Active Substance: CHOLECALCIFEROL
  22. VITAMIN B12 [Concomitant]
     Active Substance: CYANOCOBALAMIN
  23. METHADOSE [Concomitant]
     Active Substance: METHADONE HYDROCHLORIDE
  24. PAROXETINE [Concomitant]
     Active Substance: PAROXETINE
  25. ARTHROTEC [Concomitant]
     Active Substance: DICLOFENAC SODIUM\MISOPROSTOL
  26. CYMBALTA [Concomitant]
     Active Substance: DULOXETINE HYDROCHLORIDE
  27. TIZANIDINE [Concomitant]
     Active Substance: TIZANIDINE
  28. KLOR-CON [Concomitant]
     Active Substance: POTASSIUM CHLORIDE
  29. FOLIC ACID [Concomitant]
     Active Substance: FOLIC ACID
  30. LUNESTA [Concomitant]
     Active Substance: ESZOPICLONE
  31. MAGNESIUM OXIDE [Concomitant]
     Active Substance: MAGNESIUM OXIDE
  32. HYDROCOD [Concomitant]
  33. SUCRALFATE [Concomitant]
     Active Substance: SUCRALFATE
  34. RELION VENTOLIN [Concomitant]
  35. RIFAMPIN [Concomitant]
     Active Substance: RIFAMPIN
  36. BACLOFEN [Concomitant]
     Active Substance: BACLOFEN
  37. TRIAZOLAM [Concomitant]
     Active Substance: TRIAZOLAM
  38. VOLTAREN [Concomitant]
     Active Substance: DICLOFENAC SODIUM
  39. ONDANSETRON [Concomitant]
     Active Substance: ONDANSETRON
  40. NARCAN [Concomitant]
     Active Substance: NALOXONE HYDROCHLORIDE
  41. CYCLOBENZAPRINE [Concomitant]
     Active Substance: CYCLOBENZAPRINE
  42. METOPROLOL [Concomitant]
     Active Substance: METOPROLOL
  43. DEMADEX [Concomitant]
     Active Substance: TORSEMIDE
  44. ALDACTON [Concomitant]
  45. ARAVA [Concomitant]
     Active Substance: LEFLUNOMIDE
  46. ROXICODONE [Concomitant]
     Active Substance: OXYCODONE HYDROCHLORIDE

REACTIONS (2)
  - Chronic kidney disease [Not Recovered/Not Resolved]
  - Renal failure [Unknown]

NARRATIVE: CASE EVENT DATE: 20100721
